FAERS Safety Report 14816948 (Version 2)
Quarter: 2018Q2

REPORT INFORMATION
  Report Type: Spontaneous
  Country: US (occurrence: US)
  Receive Date: 20180426
  Receipt Date: 20180426
  Transmission Date: 20180711
  Serious: No
  Sender: FDA-Public Use
  Company Number: US-ASTELLAS-2017US029391

PATIENT
  Sex: Male

DRUGS (2)
  1. ASTAGRAF XL [Suspect]
     Active Substance: TACROLIMUS
     Indication: RENAL TRANSPLANT
     Route: 048
  2. ASTAGRAF XL [Suspect]
     Active Substance: TACROLIMUS
     Indication: RENAL TRANSPLANT
     Route: 048

REACTIONS (5)
  - Hyperhidrosis [Unknown]
  - Vomiting [Unknown]
  - Pyrexia [Unknown]
  - Malaise [Unknown]
  - Treatment noncompliance [Unknown]
